FAERS Safety Report 25882811 (Version 4)
Quarter: 2025Q4

REPORT INFORMATION
  Report Type: Spontaneous
  Country: JP (occurrence: JP)
  Receive Date: 20251006
  Receipt Date: 20251120
  Transmission Date: 20260117
  Serious: Yes (Death, Hospitalization, Other)
  Sender: ASTELLAS
  Company Number: JP-ASTELLAS-2025-AER-054615

PATIENT
  Age: 61 Year
  Sex: Male

DRUGS (22)
  1. VYLOY [Suspect]
     Active Substance: ZOLBETUXIMAB-CLZB
     Indication: Gastric cancer
     Route: 042
     Dates: start: 20250909, end: 20250909
  2. OXALIPLATIN [Suspect]
     Active Substance: OXALIPLATIN
     Indication: Product used for unknown indication
     Dosage: STEP- TWO DOSE REDUCTION
     Route: 065
     Dates: start: 20250909, end: 20250909
  3. OXALIPLATIN [Suspect]
     Active Substance: OXALIPLATIN
     Route: 065
     Dates: start: 20241224
  4. CAPECITABINE [Suspect]
     Active Substance: CAPECITABINE
     Indication: Product used for unknown indication
     Route: 065
     Dates: start: 20250909, end: 20250923
  5. PREDNISOLONE [Suspect]
     Active Substance: PREDNISOLONE
     Indication: Product used for unknown indication
     Route: 048
     Dates: start: 20250213
  6. PREDNISOLONE [Suspect]
     Active Substance: PREDNISOLONE
     Route: 048
     Dates: start: 20250227
  7. PREDNISOLONE [Suspect]
     Active Substance: PREDNISOLONE
     Dosage: 5 TABLETS/(3-2-0)
     Route: 048
     Dates: start: 20250220
  8. PREDNISOLONE [Suspect]
     Active Substance: PREDNISOLONE
     Dosage: 3 TABLETS /(2-1-0)
     Route: 048
     Dates: start: 20250306
  9. PREDNISOLONE [Suspect]
     Active Substance: PREDNISOLONE
     Dosage: 3 TABLETS /(2-1-0)
     Route: 048
     Dates: start: 20250403
  10. PREDNISOLONE [Suspect]
     Active Substance: PREDNISOLONE
     Dosage: 2 TABLETS /(1-1-0)
     Route: 048
     Dates: start: 20250501
  11. PREDNISOLONE [Suspect]
     Active Substance: PREDNISOLONE
     Dosage: 2 TABLETS /(1-1-0)
     Route: 048
     Dates: start: 20250605
  12. PREDNISOLONE [Suspect]
     Active Substance: PREDNISOLONE
     Dosage: GRADUAL REDUCE
     Route: 048
  13. PREDNISOLONE [Suspect]
     Active Substance: PREDNISOLONE
     Indication: Product used for unknown indication
     Dosage: 3 TABLETS/1 X NOON
     Route: 048
     Dates: start: 20250306
  14. PREDNISOLONE [Suspect]
     Active Substance: PREDNISOLONE
     Dosage: GRADUAL REDUCE
     Route: 048
  15. PREDNISOLONE [Suspect]
     Active Substance: PREDNISOLONE
     Dosage: 2 TABLETS/1 X MORNING
     Route: 048
     Dates: start: 20250605
  16. PREDNISOLONE [Suspect]
     Active Substance: PREDNISOLONE
     Dosage: 4 TABLETS/1 X MORNING
     Route: 048
     Dates: start: 20250501
  17. PREDNISOLONE [Suspect]
     Active Substance: PREDNISOLONE
     Dosage: 1 TABLET/1 X NOON
     Route: 048
     Dates: start: 20250403
  18. RAMUCIRUMAB [Concomitant]
     Active Substance: RAMUCIRUMAB
     Indication: Product used for unknown indication
     Route: 065
     Dates: start: 20250624, end: 20250826
  19. PACLITAXEL [Concomitant]
     Active Substance: PACLITAXEL
     Indication: Product used for unknown indication
     Route: 065
     Dates: start: 20250624, end: 20250826
  20. TS-1 [Concomitant]
     Active Substance: GIMERACIL\OTERACIL POTASSIUM\TEGAFUR
     Indication: Product used for unknown indication
     Route: 065
     Dates: start: 20241224, end: 20250204
  21. TS-1 [Concomitant]
     Active Substance: GIMERACIL\OTERACIL POTASSIUM\TEGAFUR
     Route: 065
     Dates: start: 20250422
  22. TS-1 [Concomitant]
     Active Substance: GIMERACIL\OTERACIL POTASSIUM\TEGAFUR
     Route: 065
     Dates: start: 20250513

REACTIONS (5)
  - Abdominal pain [Fatal]
  - Full blood count decreased [Fatal]
  - Melaena [Fatal]
  - Decreased appetite [Not Recovered/Not Resolved]
  - Malaise [Not Recovered/Not Resolved]

NARRATIVE: CASE EVENT DATE: 20250916
